FAERS Safety Report 8395435-9 (Version None)
Quarter: 2012Q1

REPORT INFORMATION
  Report Type: 
  Country: None (occurrence: None)
  Receive Date: 20120323
  Receipt Date: 20110602
  Transmission Date: 20120608
  Serious: Yes (Other)
  Sender: FDA-Public Use
  Company Number: 163-21880-11030290

PATIENT
  Age: 75 Year
  Sex: Male
  Weight: 93.8946 kg

DRUGS (6)
  1. VITAMIN B12 [Concomitant]
  2. PREDNISONE TAB [Concomitant]
  3. LOMOTIL [Concomitant]
  4. ACYCLOVIR [Concomitant]
  5. REVLIMID [Suspect]
     Indication: MULTIPLE MYELOMA
     Dosage: 10 MG, DAILY FOR 21 DAYS, PO, 5 MG, 1 IN 1 D, PO
     Route: 048
     Dates: start: 20110101
  6. REVLIMID [Suspect]
     Indication: MULTIPLE MYELOMA
     Dosage: 10 MG, DAILY FOR 21 DAYS, PO, 5 MG, 1 IN 1 D, PO
     Route: 048
     Dates: start: 20110110, end: 20110418

REACTIONS (1)
  - FULL BLOOD COUNT DECREASED [None]
